FAERS Safety Report 8840920 (Version 1)
Quarter: 2012Q4

REPORT INFORMATION
  Report Type: 
  Country: US (occurrence: US)
  Receive Date: 20121015
  Receipt Date: 20121015
  Transmission Date: 20130627
  Serious: Yes (Other)
  Sender: FDA-Public Use
  Company Number: US-ROCHE-1140551

PATIENT
  Sex: Male
  Weight: 19 kg

DRUGS (3)
  1. NUTROPIN AQ [Suspect]
     Indication: DWARFISM
     Route: 058
     Dates: start: 199811
  2. NUTROPIN AQ [Suspect]
     Indication: GROWTH HORMONE DEFICIENCY
     Route: 065
  3. TYLENOL [Concomitant]
     Route: 065

REACTIONS (7)
  - Cardiac murmur [Unknown]
  - Arthralgia [Recovering/Resolving]
  - Increased appetite [Unknown]
  - Muscle spasms [Unknown]
  - Abdominal pain [Unknown]
  - Headache [Recovering/Resolving]
  - Contusion [Unknown]
